FAERS Safety Report 24008282 (Version 2)
Quarter: 2025Q1

REPORT INFORMATION
  Report Type: Spontaneous
  Country: SE (occurrence: SE)
  Receive Date: 20240625
  Receipt Date: 20250306
  Transmission Date: 20250409
  Serious: Yes (Hospitalization, Other)
  Sender: AMGEN
  Company Number: None

PATIENT
  Age: 54 Year
  Sex: Female

DRUGS (18)
  1. BLINCYTO [Suspect]
     Active Substance: BLINATUMOMAB
     Indication: Philadelphia positive acute lymphocytic leukaemia
     Route: 040
     Dates: start: 20240405, end: 20240528
  2. REPATHA [Concomitant]
     Active Substance: EVOLOCUMAB
     Route: 058
  3. BISOPROLOL [Concomitant]
     Active Substance: BISOPROLOL
     Route: 048
  4. TARGINIQ ER [Concomitant]
     Active Substance: NALOXONE HYDROCHLORIDE\OXYCODONE HYDROCHLORIDE
     Route: 048
  5. KINERET [Concomitant]
     Active Substance: ANAKINRA
     Route: 040
     Dates: start: 20240527
  6. INSULIN LISPRO [Concomitant]
     Active Substance: INSULIN LISPRO
     Route: 058
     Dates: start: 20240517
  7. DEXAMETHASONE [Concomitant]
     Active Substance: DEXAMETHASONE
     Route: 048
  8. ENTRESTO [Concomitant]
     Active Substance: SACUBITRIL\VALSARTAN
     Route: 048
  9. Dexacur [Concomitant]
     Route: 040
     Dates: start: 20240527
  10. INSULIN HUMAN [Concomitant]
     Active Substance: INSULIN HUMAN
     Route: 058
     Dates: start: 20240526
  11. BACTRIM [Concomitant]
     Active Substance: SULFAMETHOXAZOLE\TRIMETHOPRIM
     Route: 048
  12. PANTOPRAZOLE SODIUM [Concomitant]
     Active Substance: PANTOPRAZOLE SODIUM
     Route: 040
     Dates: start: 20240602
  13. LEVETIRACETAM [Concomitant]
     Active Substance: LEVETIRACETAM
     Route: 048
     Dates: start: 20240516
  14. ACYCLOVIR [Concomitant]
     Active Substance: ACYCLOVIR
     Route: 040
     Dates: start: 20240531
  15. DAPAGLIFLOZIN [Concomitant]
     Active Substance: DAPAGLIFLOZIN
     Route: 048
  16. Furix [Concomitant]
     Route: 048
  17. VALGANCICLOVIR [Concomitant]
     Active Substance: VALGANCICLOVIR
     Route: 048
     Dates: end: 20240524
  18. CLOPIDOGREL [Concomitant]
     Active Substance: CLOPIDOGREL BISULFATE
     Route: 048

REACTIONS (10)
  - Chills [Unknown]
  - Pneumonia [Unknown]
  - Tremor [Unknown]
  - Encephalopathy [Unknown]
  - Immune effector cell-associated neurotoxicity syndrome [Unknown]
  - Encephalitis [Unknown]
  - White matter lesion [Unknown]
  - Guillain-Barre syndrome [Unknown]
  - Pyrexia [Unknown]
  - Septic shock [Unknown]

NARRATIVE: CASE EVENT DATE: 20240405
